FAERS Safety Report 16851370 (Version 1)
Quarter: 2019Q3

REPORT INFORMATION
  Report Type: Report from Study
  Country: BR (occurrence: BR)
  Receive Date: 20190925
  Receipt Date: 20190925
  Transmission Date: 20191005
  Serious: Yes (Other)
  Sender: FDA-Public Use
  Company Number: BR-UCBSA-2019039812

PATIENT
  Sex: Female
  Weight: 62 kg

DRUGS (3)
  1. TORVAL [VALPROATE SODIUM;VALPROIC ACID] [Concomitant]
     Indication: EPILEPSY
     Dosage: 300 MILLIGRAM, UNK
     Route: 048
  2. LEVETIRACETAM. [Suspect]
     Active Substance: LEVETIRACETAM
     Indication: EPILEPSY
     Dosage: 250 MILLIGRAM, 3X/DAY (TID)
     Route: 048
     Dates: start: 2009
  3. PRIMID [Concomitant]
     Indication: EPILEPSY
     Dosage: 100 MILLIGRAM, UNK
     Route: 048

REACTIONS (2)
  - Lymphoma [Unknown]
  - Off label use [Unknown]

NARRATIVE: CASE EVENT DATE: 2009
